FAERS Safety Report 19856979 (Version 1)
Quarter: 2021Q3

REPORT INFORMATION
  Report Type: Spontaneous
  Country: PL (occurrence: PL)
  Receive Date: 20210920
  Receipt Date: 20210920
  Transmission Date: 20211014
  Serious: Yes (Other)
  Sender: FDA-Public Use
  Company Number: NVSC2021PL212094

PATIENT
  Age: 68 Year
  Sex: Female
  Weight: 69 kg

DRUGS (7)
  1. FLONIDAN [Concomitant]
     Active Substance: LORATADINE
     Indication: PRODUCT USED FOR UNKNOWN INDICATION
     Dosage: UNK
     Route: 065
  2. ATROVENT [Concomitant]
     Active Substance: IPRATROPIUM BROMIDE
     Indication: PRODUCT USED FOR UNKNOWN INDICATION
     Dosage: UNK
     Route: 065
  3. TRITACE [Concomitant]
     Active Substance: RAMIPRIL
     Indication: PRODUCT USED FOR UNKNOWN INDICATION
     Dosage: UNK (24 HOUR)
     Route: 065
  4. DIURESIN [Concomitant]
     Active Substance: INDAPAMIDE
     Indication: PRODUCT USED FOR UNKNOWN INDICATION
     Dosage: UNK (24 HOUR)
     Route: 065
  5. EUPHYLLINE [Concomitant]
     Active Substance: THEOPHYLLINE ANHYDROUS
     Indication: PRODUCT USED FOR UNKNOWN INDICATION
     Dosage: UNK
     Route: 065
  6. DICLOFENAC [Suspect]
     Active Substance: DICLOFENAC
     Indication: MUSCULOSKELETAL DISCOMFORT
     Dosage: UNK (24 HOUR)
     Route: 054
     Dates: start: 20181004, end: 20181007
  7. ACARD [Concomitant]
     Indication: PRODUCT USED FOR UNKNOWN INDICATION
     Dosage: UNK (24 HOUR)
     Route: 065

REACTIONS (4)
  - Diarrhoea haemorrhagic [Unknown]
  - Blood urine present [Unknown]
  - Asthenia [Unknown]
  - Dyschromatopsia [Unknown]

NARRATIVE: CASE EVENT DATE: 20181005
